FAERS Safety Report 12754863 (Version 1)
Quarter: 2016Q3

REPORT INFORMATION
  Report Type: Report from Study
  Country: US (occurrence: US)
  Receive Date: 20160916
  Receipt Date: 20160916
  Transmission Date: 20161109
  Serious: Yes (Other)
  Sender: FDA-Public Use
  Company Number: US-AMGEN-USASL2016122847

PATIENT
  Age: 64 Year
  Sex: Female

DRUGS (1)
  1. ENBREL [Suspect]
     Active Substance: ETANERCEPT
     Indication: RHEUMATOID ARTHRITIS
     Dosage: UNK
     Route: 065

REACTIONS (9)
  - Blood calcium decreased [Unknown]
  - Paraesthesia [Unknown]
  - Weight decreased [Unknown]
  - Blood parathyroid hormone increased [Unknown]
  - Paraesthesia oral [Unknown]
  - Dizziness [Unknown]
  - Hypoaesthesia oral [Unknown]
  - Hypoaesthesia [Unknown]
  - Parathyroid disorder [Not Recovered/Not Resolved]
